FAERS Safety Report 17163568 (Version 1)
Quarter: 2019Q4

REPORT INFORMATION
  Report Type: Spontaneous
  Country: US (occurrence: US)
  Receive Date: 20191217
  Receipt Date: 20191217
  Transmission Date: 20200122
  Serious: Yes (Other)
  Sender: FDA-Public Use
  Company Number: US-NVP-000043

PATIENT
  Age: 42 Year

DRUGS (1)
  1. ACETAZOLAMIDE. [Suspect]
     Active Substance: ACETAZOLAMIDE
     Indication: CENTRAL NERVOUS SYSTEM FUNCTION TEST ABNORMAL
     Dosage: SINGLE DOSE
     Route: 042

REACTIONS (2)
  - Hyperkalaemia [Recovered/Resolved]
  - Product use in unapproved indication [Unknown]
